FAERS Safety Report 4622846-7 (Version None)
Quarter: 2005Q1

REPORT INFORMATION
  Report Type: 
  Country: None (occurrence: None)
  Receive Date: 20050330
  Receipt Date: 20050324
  Transmission Date: 20050727
  Serious: Yes (Hospitalization)
  Sender: FDA-Public Use
  Company Number: 126

PATIENT
  Age: 68 Year
  Sex: Female
  Weight: 59 kg

DRUGS (12)
  1. MELPHALAN [Suspect]
     Indication: MULTIPLE MYELOMA
     Route: 042
     Dates: start: 20041025
  2. TEQUIN [Concomitant]
     Dosage: 400MG PER DAY
     Route: 048
  3. ACYCLOVIR [Concomitant]
     Indication: HERPES SIMPLEX
     Dosage: 400MG TWICE PER DAY
     Route: 048
  4. DIFLUCAN [Concomitant]
     Indication: FUNGAL INFECTION
     Dosage: 200MG PER DAY
     Route: 048
  5. ZANTAC [Concomitant]
     Indication: DYSPEPSIA
     Dosage: 150MG TWICE PER DAY
     Route: 048
  6. PROCRIT [Concomitant]
     Indication: ANAEMIA
     Dosage: 40U WEEKLY
     Route: 042
  7. TOPROL-XL [Concomitant]
     Indication: BLOOD PRESSURE
     Dosage: 50MG TWICE PER DAY
     Route: 048
  8. SYNTHROID [Concomitant]
     Indication: HYPOTHYROIDISM
     Dosage: .025MG PER DAY
     Route: 048
  9. LISINOPRIL [Concomitant]
     Indication: BLOOD PRESSURE
     Dosage: 10MG PER DAY
     Route: 048
  10. ATIVAN [Concomitant]
     Indication: ANXIETY
     Dosage: 1MG PER DAY
     Route: 048
  11. ALLOPURINOL [Concomitant]
     Indication: GOUT
     Dosage: 300MG PER DAY
     Route: 048
  12. MAGNESIUM [Concomitant]
     Indication: NUTRITIONAL SUPPORT
     Dosage: 400MG TWICE PER DAY
     Route: 048

REACTIONS (10)
  - ABDOMINAL PAIN [None]
  - COLITIS [None]
  - CYTOMEGALOVIRUS INFECTION [None]
  - DIARRHOEA [None]
  - DIVERTICULITIS [None]
  - HAEMOGLOBIN DECREASED [None]
  - MUCOSAL INFLAMMATION [None]
  - PLATELET COUNT DECREASED [None]
  - STAPHYLOCOCCAL INFECTION [None]
  - WHITE BLOOD CELL COUNT DECREASED [None]
